FAERS Safety Report 26105690 (Version 1)
Quarter: 2025Q4

REPORT INFORMATION
  Report Type: Spontaneous
  Country: US (occurrence: US)
  Receive Date: 20251201
  Receipt Date: 20251201
  Transmission Date: 20260117
  Serious: No
  Sender: TOLMAR
  Company Number: US-Tolmar-TLM-2025-08841

PATIENT

DRUGS (2)
  1. FENSOLVI [Suspect]
     Active Substance: LEUPROLIDE ACETATE
     Indication: Precocious puberty
     Dosage: LOT NUMBER 15371CUS EXP: 12/2026?SN: 9466142291173?GTIN: 00362935163602?LOT NUMBER OF SYRINGE A: 153
  2. DEVICE [Suspect]
     Active Substance: DEVICE
     Indication: Precocious puberty
     Dosage: LOT NUMBER 15371CUS EXP: 12/2026?SN: 9466142291173?GTIN: 00362935163602?LOT NUMBER OF SYRINGE A: 153

REACTIONS (5)
  - Intercepted product preparation error [Unknown]
  - Wrong technique in product usage process [Unknown]
  - Device issue [Unknown]
  - Device breakage [Unknown]
  - Product quality issue [Unknown]
